FAERS Safety Report 8494673-4 (Version None)
Quarter: 2012Q3

REPORT INFORMATION
  Report Type: 
  Country: None (occurrence: None)
  Receive Date: 20120709
  Receipt Date: 20120703
  Transmission Date: 20120928
  Serious: Yes (Other)
  Sender: FDA-Public Use
  Company Number: PHHY2011US25056

PATIENT
  Age: 61 Year
  Sex: Female

DRUGS (3)
  1. EPINEPHRINE [Interacting]
     Dosage: 0.10 MG, UNK
  2. LIDOCAINE [Suspect]
     Dosage: UNK UKN, UNK
  3. PROPRANOLOL [Interacting]
     Dosage: 40 MG, BID

REACTIONS (4)
  - HYPERTENSIVE CRISIS [None]
  - BLOOD PRESSURE INCREASED [None]
  - HEART RATE DECREASED [None]
  - DRUG INTERACTION [None]
